FAERS Safety Report 5238371-9 (Version None)
Quarter: 2007Q1

REPORT INFORMATION
  Report Type: 
  Country: None (occurrence: None)
  Receive Date: 20070215
  Receipt Date: 20070208
  Transmission Date: 20070707
  Serious: Yes (Hospitalization, Other)
  Sender: FDA-Public Use
  Company Number: BR-AVENTIS-200710944GDDC

PATIENT
  Age: 84 Year
  Sex: Female
  Weight: 70 kg

DRUGS (9)
  1. LANTUS [Suspect]
     Route: 058
  2. LANTUS [Suspect]
     Route: 058
     Dates: start: 20070101
  3. LANTUS [Suspect]
     Route: 058
     Dates: start: 20070127, end: 20070131
  4. LANTUS [Suspect]
     Route: 058
     Dates: start: 20070201
  5. OPTIPEN (INSULIN PUMP) [Suspect]
  6. LOSARTAN POTASSIUM [Concomitant]
     Indication: HYPERTENSION
     Dosage: DOSE QUANTITY: 1
     Route: 048
  7. SINVASCOR [Concomitant]
     Dosage: DOSE QUANTITY: 1
     Route: 048
  8. ALCADIL [Concomitant]
     Dosage: DOSE QUANTITY: 1
     Route: 048
  9. NOVORAPID [Concomitant]
     Route: 058

REACTIONS (8)
  - DIZZINESS [None]
  - ENTERITIS [None]
  - HOSPITALISATION [None]
  - HYPERGLYCAEMIA [None]
  - HYPERHIDROSIS [None]
  - HYPOGLYCAEMIA [None]
  - MEDICATION ERROR [None]
  - PHARMACEUTICAL PRODUCT COMPLAINT [None]
